FAERS Safety Report 7658741-9 (Version None)
Quarter: 2011Q3

REPORT INFORMATION
  Report Type: 
  Country: None (occurrence: None)
  Receive Date: 20110805
  Receipt Date: 20110726
  Transmission Date: 20111222
  Serious: Yes (Other)
  Sender: FDA-Public Use
  Company Number: JP-NOVOPROD-332694

PATIENT

DRUGS (4)
  1. GLIMICRON [Concomitant]
     Indication: BLOOD GLUCOSE
     Dosage: 40
     Route: 048
  2. VICTOZA [Suspect]
     Dosage: 0.6 MG, QD
     Route: 058
     Dates: start: 20100824, end: 20110602
  3. GLIMICRON [Concomitant]
     Dosage: 20 MG, QD
     Route: 048
     Dates: start: 20101214
  4. VICTOZA [Suspect]
     Indication: TYPE 2 DIABETES MELLITUS
     Dosage: 0.3 MG, QD
     Route: 058
     Dates: start: 20100803

REACTIONS (2)
  - NAUSEA [None]
  - HYPERAMYLASAEMIA [None]
